FAERS Safety Report 13700513 (Version 1)
Quarter: 2017Q2

REPORT INFORMATION
  Report Type: Spontaneous
  Country: US (occurrence: US)
  Receive Date: 20170629
  Receipt Date: 20170629
  Transmission Date: 20170830
  Serious: No
  Sender: FDA-Public Use
  Company Number: US-BAYER-2017-125106

PATIENT
  Age: 67 Year
  Sex: Male
  Weight: 134 kg

DRUGS (2)
  1. CENTRUM [Concomitant]
     Active Substance: VITAMINS
     Dosage: UNK
  2. ALEVE [Suspect]
     Active Substance: NAPROXEN SODIUM
     Indication: PAIN
     Dosage: 2 DF, OM
     Route: 048
     Dates: end: 20170628

REACTIONS (3)
  - Incorrect drug administration duration [Unknown]
  - Product use in unapproved indication [Unknown]
  - Expired product administered [Unknown]

NARRATIVE: CASE EVENT DATE: 201512
